FAERS Safety Report 13250283 (Version 1)
Quarter: 2017Q1

REPORT INFORMATION
  Report Type: Spontaneous
  Country: KR (occurrence: KR)
  Receive Date: 20170218
  Receipt Date: 20170218
  Transmission Date: 20170428
  Serious: Yes (Death, Hospitalization)
  Sender: FDA-Public Use
  Company Number: KR-GLENMARK PHARMACEUTICALS-2017GMK026391

PATIENT
  Age: 86 Year
  Sex: Female

DRUGS (1)
  1. METFORMIN HYDROCHLORIDE. [Suspect]
     Active Substance: METFORMIN HYDROCHLORIDE
     Indication: TYPE 2 DIABETES MELLITUS
     Dosage: 500 MG, QD
     Route: 065

REACTIONS (6)
  - Dehydration [Unknown]
  - Diarrhoea [Unknown]
  - Acute kidney injury [None]
  - Hypovolaemia [Unknown]
  - Condition aggravated [Unknown]
  - Lactic acidosis [Fatal]
